FAERS Safety Report 26040997 (Version 1)
Quarter: 2025Q4

REPORT INFORMATION
  Report Type: Spontaneous
  Country: GB (occurrence: GB)
  Receive Date: 20251113
  Receipt Date: 20251113
  Transmission Date: 20260117
  Serious: Yes (Other)
  Sender: TEVA
  Company Number: GB-MHRA-TPP25092467C5724960YC1762260212687

PATIENT
  Age: 64 Year
  Sex: Male
  Weight: 67 kg

DRUGS (20)
  1. DEXAMETHASONE [Suspect]
     Active Substance: DEXAMETHASONE
     Indication: Ill-defined disorder
     Route: 065
     Dates: start: 20251104
  2. ZOPICLONE [Concomitant]
     Active Substance: ZOPICLONE
     Indication: Ill-defined disorder
     Dosage: AT NIGHT
     Dates: start: 20251104
  3. HALOPERIDOL [Concomitant]
     Active Substance: HALOPERIDOL
     Indication: Ill-defined disorder
     Dosage: 1.5-5MG IN SYRINGE DRIVER OVER 24HRS +/OR 0.5-1.5MG SC EVERY 8 HOURS AS REQUIRED FOR NAUSEA AND S...
     Dates: start: 20251016
  4. MIRTAZAPINE [Concomitant]
     Active Substance: MIRTAZAPINE
     Indication: Ill-defined disorder
     Dosage: NIGHT. PLEASE REVIEW THIS MEDICATION WITH A GP BEFORE NEXT ISSUE
     Dates: start: 20251030
  5. LANSOPRAZOLE [Concomitant]
     Active Substance: LANSOPRAZOLE
     Indication: Ill-defined disorder
     Dates: start: 20250807, end: 20251002
  6. DEXAMETHASONE [Concomitant]
     Active Substance: DEXAMETHASONE
     Indication: Ill-defined disorder
     Dosage: DAILY AS ADVISED BY SPECIALIST
     Dates: start: 20250807, end: 20251104
  7. BRIVARACETAM [Concomitant]
     Active Substance: BRIVARACETAM
     Indication: Ill-defined disorder
     Dosage: DAILY DOSE: 2 DOSAGE FORM
     Dates: start: 20251007
  8. SENNA [Concomitant]
     Active Substance: SENNOSIDES
     Indication: Ill-defined disorder
     Dosage: TAKE 1 OR 2 TABLETS AT NIGHT FOR CONSTIPATION W...
     Dates: start: 20251014
  9. ACETAMINOPHEN [Concomitant]
     Active Substance: ACETAMINOPHEN
     Indication: Ill-defined disorder
     Dosage: TAKE 10ML ( 500MG) EVERY 4-6 HOURS WHEN REQUIRE...
     Dates: start: 20251014
  10. LORAZEPAM [Concomitant]
     Active Substance: LORAZEPAM
     Indication: Ill-defined disorder
     Dosage: DAILY DOSE: 2 DOSAGE FORM
     Dates: start: 20251007
  11. GLYCOPYRROLATE [Concomitant]
     Active Substance: GLYCOPYRROLATE
     Indication: Ill-defined disorder
     Dosage: 600MCG-1.2MG VIA SYRINGE DRIVER OVER 24HOURS +/...
     Dates: start: 20251016, end: 20251019
  12. GLYCERIN [Concomitant]
     Active Substance: GLYCERIN
     Indication: Ill-defined disorder
     Dosage: INSERT ONE AS NEEDED
     Dates: start: 20251021, end: 20251022
  13. MIDAZOLAM [Concomitant]
     Active Substance: MIDAZOLAM
     Indication: Ill-defined disorder
     Dosage: 10-20MG VIA SD OVER 24HR + 2.5-5MG SC 2HRLY WHE...
     Dates: start: 20251016, end: 20251021
  14. MORPHINE SULFATE [Concomitant]
     Active Substance: MORPHINE SULFATE
     Indication: Ill-defined disorder
     Dosage: 10-20MG VIA SYRINGE DRIVER OVER 24H AND 2.5-5MG SC EVERY 2-4HRS WHEN REQUIRED
     Dates: start: 20251016
  15. CITALOPRAM [Concomitant]
     Active Substance: CITALOPRAM
     Indication: Ill-defined disorder
     Dosage: FOR 1 WEEK THEN HALF TABL...
     Dates: start: 20251007, end: 20251030
  16. CODEINE PHOSPHATE [Concomitant]
     Active Substance: CODEINE PHOSPHATE
     Indication: Ill-defined disorder
     Dosage: DAILY DOSE: 4 DOSAGE FORM
     Dates: start: 20251007, end: 20251014
  17. FAMOTIDINE [Concomitant]
     Active Substance: FAMOTIDINE
     Indication: Ill-defined disorder
     Dosage: AT NIGHT
     Dates: start: 20251007
  18. NITROFURANTOIN [Concomitant]
     Active Substance: NITROFURANTOIN
     Indication: Ill-defined disorder
     Dosage: DAILY DOSE: 2 DOSAGE FORM
     Dates: start: 20251010, end: 20251017
  19. LEVETIRACETAM [Concomitant]
     Active Substance: LEVETIRACETAM
     Indication: Ill-defined disorder
     Dosage: DAILY DOSE: 2 DOSAGE FORM
     Dates: start: 20250728, end: 20251002
  20. CYCLIZINE [Concomitant]
     Active Substance: CYCLIZINE
     Indication: Ill-defined disorder
     Dosage: 100-150MG VIA SYRINGE DRIVER OVER 24HOURS, AND/...
     Dates: start: 20251016, end: 20251021

REACTIONS (1)
  - Acute psychosis [Recovering/Resolving]

NARRATIVE: CASE EVENT DATE: 20251104
